FAERS Safety Report 7461786-5 (Version None)
Quarter: 2011Q2

REPORT INFORMATION
  Report Type: 
  Country: None (occurrence: None)
  Receive Date: 20110506
  Receipt Date: 20110404
  Transmission Date: 20111010
  Serious: Yes (Hospitalization, Other)
  Sender: FDA-Public Use
  Company Number: US-BAYER-201017563NA

PATIENT
  Age: 29 Year
  Sex: Female
  Weight: 50 kg

DRUGS (12)
  1. REGLAN [Concomitant]
     Indication: PRODUCT USED FOR UNKNOWN INDICATION
     Dosage: UNK UNK, UNK
     Route: 048
     Dates: start: 20090601, end: 20090601
  2. COLESTID [Concomitant]
  3. KAPIDEX [Concomitant]
     Dosage: UNK
     Route: 048
     Dates: start: 20090601, end: 20090601
  4. YAZ [Suspect]
     Indication: CONTRACEPTION
     Route: 048
     Dates: start: 20080601, end: 20090901
  5. NEXIUM [Concomitant]
     Dosage: DAILY DOSE 40 MG
     Route: 048
     Dates: start: 20080901
  6. BENTYL [Concomitant]
     Route: 048
  7. ACIPHEX [Concomitant]
     Dosage: DAILY DOSE 20 MG
     Route: 048
     Dates: start: 20081201
  8. WOMAN!S ONE A DAY VITAMINS [Concomitant]
     Indication: PRODUCT USED FOR UNKNOWN INDICATION
     Route: 065
  9. PEPCID [Concomitant]
     Indication: PRODUCT USED FOR UNKNOWN INDICATION
     Route: 065
  10. YAZ [Suspect]
     Indication: ACNE
  11. YASMIN [Suspect]
     Dosage: UNK
     Dates: start: 20061201, end: 20080201
  12. ZANTAC [Concomitant]
     Indication: PRODUCT USED FOR UNKNOWN INDICATION
     Route: 065

REACTIONS (5)
  - NAUSEA [None]
  - BILIARY DYSKINESIA [None]
  - ABDOMINAL PAIN UPPER [None]
  - DIARRHOEA [None]
  - CHOLECYSTITIS CHRONIC [None]
